FAERS Safety Report 4950828-4 (Version None)
Quarter: 2006Q1

REPORT INFORMATION
  Report Type: 
  Country: None (occurrence: None)
  Receive Date: 20060322
  Receipt Date: 20060315
  Transmission Date: 20060701
  Serious: Yes (Other)
  Sender: FDA-Public Use
  Company Number: PHBS2006JP04137

PATIENT
  Age: 28 Year
  Sex: Female

DRUGS (2)
  1. PREDNISOLONE [Suspect]
     Indication: LUPUS NEPHRITIS
     Dosage: 5 MG/D
     Route: 065
  2. CYCLOSPORINE [Suspect]
     Indication: LUPUS NEPHRITIS
     Dosage: 50 MG/D
     Route: 065

REACTIONS (3)
  - ABORTION SPONTANEOUS [None]
  - DRUG EXPOSURE DURING PREGNANCY [None]
  - OSTEONECROSIS [None]
